FAERS Safety Report 5583726-6 (Version None)
Quarter: 2008Q1

REPORT INFORMATION
  Report Type: 
  Country: None (occurrence: None)
  Receive Date: 20080102
  Receipt Date: 20071214
  Transmission Date: 20080703
  Serious: Yes (Other)
  Sender: FDA-Public Use
  Company Number: S07-FRA-06440-01

PATIENT
  Age: 45 Year
  Sex: Male

DRUGS (3)
  1. CITALOPRAM HYDROBROMIDE [Suspect]
     Dates: start: 20050101
  2. THERALITE (LITHIUM CARBONATE) [Suspect]
     Dosage: 400 MG BID PO
     Route: 048
     Dates: start: 20071101, end: 20071201
  3. PHENYLBUTAZONE [Concomitant]

REACTIONS (5)
  - CONDITION AGGRAVATED [None]
  - DRUG INTERACTION [None]
  - MYOPIA [None]
  - PSORIASIS [None]
  - WEIGHT INCREASED [None]
